FAERS Safety Report 6677036-3 (Version None)
Quarter: 2010Q2

REPORT INFORMATION
  Report Type: 
  Country: None (occurrence: None)
  Receive Date: 20100412
  Receipt Date: 20100409
  Transmission Date: 20101027
  Serious: Yes (Other)
  Sender: FDA-Public Use
  Company Number: A0841161A

PATIENT
  Age: 71 Year
  Sex: Female

DRUGS (3)
  1. ALLI [Suspect]
     Route: 048
     Dates: start: 20100118, end: 20100122
  2. POLYPHARMACY [Concomitant]
  3. CHOLESTEROL REDUCING AGENT [Concomitant]

REACTIONS (9)
  - ABDOMINAL PAIN UPPER [None]
  - BLOOD CREATININE INCREASED [None]
  - CONSTIPATION [None]
  - GASTROINTESTINAL DISORDER [None]
  - HAEMORRHAGE [None]
  - ILL-DEFINED DISORDER [None]
  - PAINFUL DEFAECATION [None]
  - RECTAL HAEMORRHAGE [None]
  - VOMITING [None]
